FAERS Safety Report 8382432 (Version 3)
Quarter: 2013Q2

REPORT INFORMATION
  Report Type: Spontaneous
  Country: US (occurrence: US)
  Receive Date: 20120201
  Receipt Date: 20130402
  Transmission Date: 20140414
  Serious: Yes (Hospitalization, Other)
  Sender: FDA-Public Use
  Company Number: US-ROCHE-1006916

PATIENT
  Age: 21 Year
  Sex: Male
  Weight: 47.67 kg

DRUGS (2)
  1. ACCUTANE [Suspect]
     Indication: ACNE
     Route: 065
     Dates: start: 20021017, end: 200303
  2. ACCUTANE [Suspect]
     Route: 065
     Dates: end: 20040121

REACTIONS (6)
  - Crohn^s disease [Unknown]
  - Colitis ulcerative [Unknown]
  - Inflammatory bowel disease [Unknown]
  - Anxiety [Unknown]
  - Emotional distress [Unknown]
  - Irritable bowel syndrome [Unknown]
